FAERS Safety Report 8173099-7 (Version None)
Quarter: 2012Q1

REPORT INFORMATION
  Report Type: 
  Country: None (occurrence: None)
  Receive Date: 20120229
  Receipt Date: 20120216
  Transmission Date: 20120608
  Serious: Yes (Hospitalization)
  Sender: FDA-Public Use
  Company Number: FR-JNJFOC-20120204217

PATIENT
  Age: 45 Year
  Sex: Male
  Weight: 80 kg

DRUGS (8)
  1. REMICADE [Suspect]
     Indication: ANKYLOSING SPONDYLITIS
     Route: 042
     Dates: start: 20111205
  2. REMICADE [Suspect]
     Indication: COLITIS ULCERATIVE
     Dosage: 3RD INFUSION
     Route: 042
     Dates: start: 20111220
  3. REMICADE [Suspect]
     Route: 042
     Dates: start: 20111205
  4. REMICADE [Suspect]
     Indication: SPONDYLOARTHROPATHY
     Dosage: 3RD INFUSION
     Route: 042
     Dates: start: 20111220
  5. FIVASA [Concomitant]
     Route: 065
  6. REMICADE [Suspect]
     Route: 042
     Dates: start: 20111205
  7. REMICADE [Suspect]
     Dosage: 3RD INFUSION
     Route: 042
     Dates: start: 20111220
  8. IMURAN [Suspect]
     Indication: COLITIS ULCERATIVE
     Route: 065

REACTIONS (3)
  - PHARYNGITIS [None]
  - ACUTE RESPIRATORY FAILURE [None]
  - LUNG DISORDER [None]
